FAERS Safety Report 11992943 (Version 1)
Quarter: 2016Q1

REPORT INFORMATION
  Report Type: Spontaneous
  Country: US (occurrence: US)
  Receive Date: 20160203
  Receipt Date: 20160203
  Transmission Date: 20160526
  Serious: No
  Sender: FDA-Public Use
  Company Number: US-UCBSA-2015014169

PATIENT
  Sex: Female
  Weight: 7.42 kg

DRUGS (1)
  1. KEPPRA [Suspect]
     Active Substance: LEVETIRACETAM
     Indication: PRODUCT USED FOR UNKNOWN INDICATION

REACTIONS (5)
  - Poor quality sleep [Unknown]
  - Sensory loss [Unknown]
  - Somnolence [Unknown]
  - Sleep talking [Unknown]
  - Seizure [Unknown]
